FAERS Safety Report 25883481 (Version 1)
Quarter: 2025Q4

REPORT INFORMATION
  Report Type: Other
  Country: EU (occurrence: EU)
  Receive Date: 20251006
  Receipt Date: 20251006
  Transmission Date: 20260118
  Serious: Yes (Hospitalization)
  Sender: ZYDUS PHARM
  Company Number: None

PATIENT

DRUGS (6)
  1. GABAPENTIN [Interacting]
     Active Substance: GABAPENTIN
     Indication: Suicide attempt
     Dosage: 27 GRAM,1 TOTAL
     Route: 048
     Dates: start: 20250811, end: 20250811
  2. TRAMADOL [Interacting]
     Active Substance: TRAMADOL
     Indication: Suicide attempt
     Dosage: 3 GRAM,1 TOTAL
     Route: 048
     Dates: start: 20250811, end: 20250811
  3. RIVOTRIL [Interacting]
     Active Substance: CLONAZEPAM
     Indication: Suicide attempt
     Dosage: 30 MILLIGRAM, 1 TOTAL,TABLET
     Route: 048
     Dates: start: 20250811, end: 20250811
  4. GABAPENTIN [Concomitant]
     Active Substance: GABAPENTIN
     Indication: Pain
     Dosage: 400 MILLIGRAM, QD, 300MG 1-0-0.5
     Route: 048
     Dates: start: 20180523, end: 20250811
  5. TRAMADOL [Concomitant]
     Active Substance: TRAMADOL
     Indication: Pain
     Dosage: 100 MILLIGRAM, BID,50MG 2-0-2
     Route: 048
     Dates: start: 20180604, end: 20250811
  6. RIVOTRIL [Concomitant]
     Active Substance: CLONAZEPAM
     Indication: Drug dependence
     Dosage: 1 MILLIGRAM, BID, 0.5MG 1-0-1, TABLET
     Route: 048
     Dates: start: 20180504, end: 20250811

REACTIONS (5)
  - Acute kidney injury [Recovered/Resolved]
  - Blood creatine phosphokinase increased [Recovered/Resolved]
  - Hallucination, visual [Recovered/Resolved]
  - Somnolence [Recovered/Resolved]
  - Intentional overdose [Recovered/Resolved]

NARRATIVE: CASE EVENT DATE: 20250811
